FAERS Safety Report 5684633-0 (Version None)
Quarter: 2008Q1

REPORT INFORMATION
  Report Type: 
  Country: None (occurrence: None)
  Receive Date: 20080328
  Receipt Date: 20070723
  Transmission Date: 20080703
  Serious: No
  Sender: FDA-Public Use
  Company Number: US-BRISTOL-MYERS SQUIBB COMPANY-13753546

PATIENT
  Age: 76 Year
  Sex: Male
  Weight: 88 kg

DRUGS (2)
  1. ERBITUX [Suspect]
     Indication: NEOPLASM MALIGNANT
     Dosage: RESTARTED ON 15APR07 AS WEEKLY DOSE
     Route: 042
     Dates: start: 20070315, end: 20070621
  2. NORVASC [Concomitant]

REACTIONS (1)
  - RASH PRURITIC [None]
